FAERS Safety Report 24798068 (Version 2)
Quarter: 2025Q2

REPORT INFORMATION
  Report Type: Spontaneous
  Country: CH (occurrence: CH)
  Receive Date: 20250102
  Receipt Date: 20250401
  Transmission Date: 20250716
  Serious: Yes (Death, Other)
  Sender: BRISTOL MYERS SQUIBB
  Company Number: CH-BRISTOL-MYERS SQUIBB COMPANY-2024-199716

PATIENT
  Age: 84 Year
  Sex: Female

DRUGS (2)
  1. NIVOLUMAB [Suspect]
     Active Substance: NIVOLUMAB
     Indication: Uveal melanoma
  2. IPILIMUMAB [Suspect]
     Active Substance: IPILIMUMAB
     Indication: Uveal melanoma

REACTIONS (2)
  - Immune-mediated hypophysitis [Fatal]
  - Adrenalitis [Fatal]
